FAERS Safety Report 6849655-2 (Version None)
Quarter: 2010Q3

REPORT INFORMATION
  Report Type: 
  Country: None (occurrence: None)
  Receive Date: 20100716
  Receipt Date: 20071002
  Transmission Date: 20110219
  Serious: No
  Sender: FDA-Public Use
  Company Number: US-PFIZER INC-2007083919

PATIENT
  Sex: Female
  Weight: 52.3 kg

DRUGS (5)
  1. CHANTIX [Suspect]
     Indication: SMOKING CESSATION THERAPY
     Dates: start: 20070925
  2. WELLBUTRIN [Concomitant]
     Indication: DEPRESSION
  3. ANTIHYPERTENSIVES [Concomitant]
  4. FENTANYL [Concomitant]
     Indication: FIBROMYALGIA
  5. XANAX [Concomitant]

REACTIONS (2)
  - ANXIETY [None]
  - SLEEP DISORDER [None]
